FAERS Safety Report 10218736 (Version 1)
Quarter: 2014Q2

REPORT INFORMATION
  Report Type: Spontaneous
  Country: US (occurrence: US)
  Receive Date: 20140605
  Receipt Date: 20140605
  Transmission Date: 20141212
  Serious: No
  Sender: FDA-Public Use
  Company Number: US-B.I. PHARMACEUTICALS,INC./RIDGEFIELD-2014-BI-23266BP

PATIENT
  Age: 84 Year
  Sex: Male
  Weight: 85 kg

DRUGS (6)
  1. PRADAXA [Suspect]
     Indication: ATRIAL FIBRILLATION
     Dosage: 150 MG
     Route: 048
     Dates: start: 201312
  2. FINESTARIDE [Concomitant]
     Indication: POLLAKIURIA
     Dosage: 5 MG
     Route: 048
  3. CARVEDILOL [Concomitant]
     Indication: CORONARY ARTERY BYPASS
     Dosage: 3.125 MG
     Route: 048
  4. GLYBURIDE [Concomitant]
     Indication: DIABETES MELLITUS
     Dosage: 5 MG
     Route: 048
  5. SIMVASTATIN [Concomitant]
     Indication: BLOOD CHOLESTEROL INCREASED
     Dosage: 10 MG
     Route: 048
  6. LISINOPRIL [Concomitant]
     Indication: HYPERTENSION
     Dosage: 2.5 MG
     Route: 048

REACTIONS (3)
  - Dyspnoea [Not Recovered/Not Resolved]
  - Weight increased [Not Recovered/Not Resolved]
  - Fatigue [Not Recovered/Not Resolved]
